FAERS Safety Report 5280486-3 (Version None)
Quarter: 2007Q1

REPORT INFORMATION
  Report Type: 
  Country: None (occurrence: None)
  Receive Date: 20070329
  Receipt Date: 20070320
  Transmission Date: 20070707
  Serious: Yes (Other)
  Sender: FDA-Public Use
  Company Number: GB-MERCK-0703GBR00098

PATIENT
  Age: 66 Year
  Sex: Male

DRUGS (6)
  1. ZOCOR [Suspect]
     Indication: MYOCARDIAL ISCHAEMIA
     Route: 048
     Dates: start: 20060106, end: 20070216
  2. ASPIRIN [Concomitant]
     Route: 065
     Dates: start: 20060106
  3. BECLOMETHASONE DIPROPIONATE [Concomitant]
     Route: 065
     Dates: start: 19990107
  4. SALMETEROL XINAFOATE [Concomitant]
     Route: 065
     Dates: start: 20010522
  5. TELMISARTAN [Concomitant]
     Route: 065
     Dates: start: 20051209
  6. TRAMADOL HYDROCHLORIDE [Concomitant]
     Route: 065
     Dates: start: 20021202

REACTIONS (2)
  - BLOOD CREATINE PHOSPHOKINASE INCREASED [None]
  - MYOSITIS [None]
